FAERS Safety Report 8498295-0 (Version None)
Quarter: 2012Q3

REPORT INFORMATION
  Report Type: 
  Country: None (occurrence: None)
  Receive Date: 20120709
  Receipt Date: 20120621
  Transmission Date: 20120928
  Serious: No
  Sender: FDA-Public Use
  Company Number: US-AMGEN-USASP2012038696

PATIENT
  Age: 53 Year
  Sex: Male

DRUGS (1)
  1. ENBREL [Suspect]
     Indication: RHEUMATOID ARTHRITIS
     Dosage: 50 MG, QWK
     Dates: start: 20050615, end: 20110401

REACTIONS (5)
  - RHEUMATOID ARTHRITIS [None]
  - WHITE BLOOD CELLS URINE [None]
  - FEELING ABNORMAL [None]
  - PROTEINURIA [None]
  - RED BLOOD CELLS URINE [None]
